FAERS Safety Report 8060202 (Version 2)
Quarter: 2013Q2

REPORT INFORMATION
  Report Type: Report from Study
  Country: MX (occurrence: MX)
  Receive Date: 20110729
  Receipt Date: 20130521
  Transmission Date: 20140414
  Serious: Yes (Other)
  Sender: FDA-Public Use
  Company Number: PHHY2011MX66298

PATIENT
  Age: 66 Year
  Sex: Female

DRUGS (2)
  1. ZOMETA [Suspect]
     Indication: METASTASES TO BONE
     Dosage: UNK UKN, ONCE A MONTH
     Route: 042
     Dates: end: 201104
  2. ARIMIDEX [Concomitant]
     Dosage: UNK UKN, UNK

REACTIONS (6)
  - Osteonecrosis of jaw [Not Recovered/Not Resolved]
  - Osteomyelitis [Recovered/Resolved]
  - Exposed bone in jaw [Not Recovered/Not Resolved]
  - Gingival swelling [Unknown]
  - Loose tooth [Recovered/Resolved]
  - Pain in jaw [Unknown]
